FAERS Safety Report 15671632 (Version 4)
Quarter: 2019Q3

REPORT INFORMATION
  Report Type: Report from Study
  Country: US (occurrence: US)
  Receive Date: 20181129
  Receipt Date: 20190715
  Transmission Date: 20191004
  Serious: Yes (Other)
  Sender: FDA-Public Use
  Company Number: US-TESARO-US-2018TSO04298

PATIENT
  Age: 66 Year
  Sex: Female

DRUGS (7)
  1. ZEJULA [Suspect]
     Active Substance: NIRAPARIB
     Dosage: 100 MG, DAILY IN THE EVENING WITH OR WITHOUT FOOD BUT USUALLY WITHOUT FOOD
     Dates: start: 20180921, end: 20180928
  2. ZEJULA [Suspect]
     Active Substance: NIRAPARIB
     Dosage: 100 MG DAILY
     Dates: start: 20181019, end: 20190117
  3. ZEJULA [Suspect]
     Active Substance: NIRAPARIB
     Dosage: 100 MG QPM WITH FOOD
     Route: 048
     Dates: start: 20190201
  4. ZEJULA [Suspect]
     Active Substance: NIRAPARIB
     Dosage: 200 MG, QD 2 CAPSULES BY MOUTH ONCE DAILY
     Route: 048
     Dates: start: 20180803, end: 20180920
  5. ZEJULA [Suspect]
     Active Substance: NIRAPARIB
     Dosage: 100 MG 1 DAY THEN 200 MG THE NEXT
     Dates: start: 20190118, end: 20190131
  6. ZEJULA [Suspect]
     Active Substance: NIRAPARIB
     Indication: OVARIAN CANCER
     Dosage: 300 MG, QD
     Route: 048
     Dates: start: 20180622, end: 20180713
  7. ZEJULA [Suspect]
     Active Substance: NIRAPARIB
     Dosage: 200 MG QPM
     Dates: start: 20180929, end: 20181018

REACTIONS (14)
  - Blood cholesterol increased [Unknown]
  - Platelet count decreased [Recovered/Resolved]
  - Platelet count decreased [Not Recovered/Not Resolved]
  - Constipation [Not Recovered/Not Resolved]
  - Mean cell volume increased [Unknown]
  - Red blood cell count decreased [Unknown]
  - Inappropriate schedule of product administration [Unknown]
  - Nausea [Not Recovered/Not Resolved]
  - Neuropathy peripheral [Unknown]
  - Bone marrow failure [Unknown]
  - Rash erythematous [Not Recovered/Not Resolved]
  - Fatigue [Unknown]
  - Anaemia [Not Recovered/Not Resolved]
  - Haemoglobin decreased [Unknown]

NARRATIVE: CASE EVENT DATE: 201808
